FAERS Safety Report 25364593 (Version 1)
Quarter: 2025Q2

REPORT INFORMATION
  Report Type: Spontaneous
  Country: US (occurrence: US)
  Receive Date: 20250527
  Receipt Date: 20250527
  Transmission Date: 20250716
  Serious: No
  Sender: MYLAN
  Company Number: US-MYLANLABS-2025M1042445

PATIENT
  Sex: Female
  Weight: 92.99 kg

DRUGS (3)
  1. LATANOPROST [Suspect]
     Active Substance: LATANOPROST
     Indication: Glaucoma
     Dosage: 50 MICROGRAM, BID (2 TIMES A DAY, EVERY MORNING AND NIGHT)
  2. LATANOPROST [Suspect]
     Active Substance: LATANOPROST
     Dosage: 50 MICROGRAM, BID (2 TIMES A DAY, EVERY MORNING AND NIGHT)
  3. TYLENOL [Concomitant]
     Active Substance: ACETAMINOPHEN

REACTIONS (3)
  - Eye irritation [Recovered/Resolved]
  - Eye pain [Recovered/Resolved]
  - Off label use [Unknown]

NARRATIVE: CASE EVENT DATE: 20240101
